FAERS Safety Report 5457017-8 (Version None)
Quarter: 2007Q3

REPORT INFORMATION
  Report Type: 
  Country: None (occurrence: None)
  Receive Date: 20070918
  Receipt Date: 20070330
  Transmission Date: 20080115
  Serious: Yes (Other)
  Sender: FDA-Public Use
  Company Number: US-ASTRAZENECA-2006UW27526

PATIENT
  Age: 40 Year
  Sex: Female
  Weight: 59.1 kg

DRUGS (4)
  1. SEROQUEL [Suspect]
     Indication: EMOTIONAL DISORDER
     Route: 048
     Dates: start: 20030101
  2. SEROQUEL [Suspect]
     Indication: AFFECTIVE DISORDER
     Route: 048
     Dates: start: 20030101
  3. SEROQUEL [Suspect]
     Indication: INSOMNIA
     Route: 048
     Dates: start: 20030101
  4. LEXAPRO [Concomitant]
     Dates: start: 20030101

REACTIONS (1)
  - PANCREATITIS [None]
